FAERS Safety Report 22175864 (Version 1)
Quarter: 2023Q2

REPORT INFORMATION
  Report Type: Spontaneous
  Country: CA (occurrence: None)
  Receive Date: 20230405
  Receipt Date: 20230405
  Transmission Date: 20230722
  Serious: Yes (Other)
  Sender: FDA-Public Use
  Company Number: CA-PFIZER INC-202300143048

PATIENT
  Age: 75 Year
  Sex: Female

DRUGS (2)
  1. METHOTREXATE [Suspect]
     Active Substance: METHOTREXATE
     Indication: Product used for unknown indication
     Route: 065
  2. PREDNISONE [Concomitant]
     Active Substance: PREDNISONE
     Route: 065

REACTIONS (8)
  - Hip surgery [Not Recovered/Not Resolved]
  - Knee operation [Not Recovered/Not Resolved]
  - Disease progression [Unknown]
  - Depression [Unknown]
  - Confusional state [Unknown]
  - Gait disturbance [Unknown]
  - Impaired driving ability [Not Recovered/Not Resolved]
  - Stubbornness [Unknown]
